FAERS Safety Report 16974486 (Version 1)
Quarter: 2019Q4

REPORT INFORMATION
  Report Type: Spontaneous
  Country: US (occurrence: US)
  Receive Date: 20190912
  Receipt Date: 20190912
  Transmission Date: 20200122
  Serious: Yes (Other)
  Sender: FDA-Public Use
  Company Number: None

PATIENT
  Sex: Female
  Weight: 63.96 kg

DRUGS (9)
  1. LEXAPRO [Suspect]
     Active Substance: ESCITALOPRAM OXALATE
     Indication: ANXIETY
     Dosage: ?          QUANTITY:10 MG MILLIGRAM(S);?
     Route: 048
     Dates: start: 20190718, end: 20190724
  2. VIT D [Concomitant]
     Active Substance: VITAMIN D NOS
  3. ASP 81MG [Concomitant]
  4. VITAMIN E [Concomitant]
     Active Substance: .ALPHA.-TOCOPHEROL
  5. ALEVE [Concomitant]
     Active Substance: NAPROXEN SODIUM
  6. LEVOTHYROXINE. [Concomitant]
     Active Substance: LEVOTHYROXINE
  7. EYE DROPS [Concomitant]
     Active Substance: UNSPECIFIED INGREDIENT
  8. SIMVASTATIN. [Concomitant]
     Active Substance: SIMVASTATIN
  9. LORAZEPAM. [Concomitant]
     Active Substance: LORAZEPAM

REACTIONS (22)
  - Headache [None]
  - Crying [None]
  - Nausea [None]
  - Drug ineffective [None]
  - Back pain [None]
  - Blood pressure increased [None]
  - Memory impairment [None]
  - Impaired driving ability [None]
  - Weight decreased [None]
  - Bradyphrenia [None]
  - Paraesthesia [None]
  - Hypophagia [None]
  - Dizziness [None]
  - Pain in extremity [None]
  - Poor quality sleep [None]
  - Infection [None]
  - Burning sensation [None]
  - Dysgraphia [None]
  - Pain [None]
  - Tinnitus [None]
  - Taste disorder [None]
  - Asthenia [None]
